FAERS Safety Report 15617230 (Version 1)
Quarter: 2018Q4

REPORT INFORMATION
  Report Type: Spontaneous
  Country: US (occurrence: US)
  Receive Date: 20181112
  Receipt Date: 20181112
  Transmission Date: 20190205
  Serious: Yes (Disabling)
  Sender: FDA-Public Use
  Company Number: None

PATIENT
  Age: 69 Year
  Sex: Female
  Weight: 108 kg

DRUGS (12)
  1. VITAMIN D [Concomitant]
     Active Substance: CHOLECALCIFEROL
  2. ADVAIR HFA [Concomitant]
     Active Substance: FLUTICASONE PROPIONATE\SALMETEROL XINAFOATE
  3. HCTZ [Concomitant]
     Active Substance: HYDROCHLOROTHIAZIDE
  4. CETIRIZINE [Concomitant]
     Active Substance: CETIRIZINE HYDROCHLORIDE
  5. FOLATE SUPPLEMENT [Concomitant]
  6. LISINOPRIL. [Concomitant]
     Active Substance: LISINOPRIL
  7. LOW DOSE ASPIRIN [Concomitant]
     Active Substance: ASPIRIN
  8. CYANOCOBALAMINE [Concomitant]
     Active Substance: CYANOCOBALAMIN
  9. METRONIDAZOLE GEL USP 1% [Suspect]
     Active Substance: METRONIDAZOLE
     Indication: ROSACEA
     Dosage: ?          QUANTITY:1 TUBE;?
     Route: 061
  10. LEVOTHYROXINE. [Concomitant]
     Active Substance: LEVOTHYROXINE
  11. IRON SUPPLEMENT [Concomitant]
     Active Substance: IRON
  12. VITAMIN C [Concomitant]
     Active Substance: ASCORBIC ACID

REACTIONS (6)
  - Product quality issue [None]
  - Sticky skin [None]
  - Product gel formation [None]
  - Acne [None]
  - Economic problem [None]
  - Product complaint [None]

NARRATIVE: CASE EVENT DATE: 20181015
